FAERS Safety Report 9722973 (Version 1)
Quarter: 2013Q4

REPORT INFORMATION
  Report Type: Spontaneous
  Country: US (occurrence: None)
  Receive Date: 20131126
  Receipt Date: 20131126
  Transmission Date: 20140711
  Serious: Yes (Hospitalization, Other)
  Sender: FDA-Public Use
  Company Number: 2013-US-003047

PATIENT
  Age: 29 Year
  Sex: Female
  Weight: 49 kg

DRUGS (3)
  1. XYREM (SODIUM OXYBATE) ORAL SOLUTION, 500MG/ML [Suspect]
     Indication: NARCOLEPSY
     Route: 048
     Dates: start: 201310, end: 2013
  2. XYREM (SODIUM OXYBATE) ORAL SOLUTION, 500MG/ML [Suspect]
     Indication: CATAPLEXY
     Route: 048
     Dates: start: 201310, end: 2013
  3. NUVIGIL (ARMODAFINIL) [Concomitant]

REACTIONS (11)
  - Schizophrenia [None]
  - Psychotic disorder [None]
  - Mania [None]
  - Psychotic disorder [None]
  - Insomnia [None]
  - Unevaluable event [None]
  - Pain [None]
  - Musculoskeletal stiffness [None]
  - Weight decreased [None]
  - Decreased appetite [None]
  - Self esteem decreased [None]
